FAERS Safety Report 7134809-0 (Version None)
Quarter: 2010Q4

REPORT INFORMATION
  Report Type: 
  Country: None (occurrence: None)
  Receive Date: 20101203
  Receipt Date: 20101130
  Transmission Date: 20110411
  Serious: Yes (Other)
  Sender: FDA-Public Use
  Company Number: BR-ROCHE-745323

PATIENT
  Sex: Female

DRUGS (2)
  1. RIVOTRIL [Suspect]
     Indication: DEPRESSION
     Dosage: CO-INDICATION:INSOMNIA, TAKES HALF TABLET INSTEAD OF ONE TABLET DAILY (MEDICATION ERROR)
     Route: 048
     Dates: start: 20030101
  2. EMETIRAL [Suspect]
     Indication: DEPRESSION
     Dosage: DRUG REPORTED AS EMETRIL, CO-INDICATION:MUSCLE PAIN
     Route: 065

REACTIONS (5)
  - DRUG ADMINISTRATION ERROR [None]
  - DRUG INEFFECTIVE [None]
  - FIBROMYALGIA [None]
  - INTERVERTEBRAL DISC PROTRUSION [None]
  - SOMNOLENCE [None]
